FAERS Safety Report 16399513 (Version 6)
Quarter: 2019Q3

REPORT INFORMATION
  Report Type: Spontaneous
  Country: US (occurrence: US)
  Receive Date: 20190606
  Receipt Date: 20190809
  Transmission Date: 20191004
  Serious: Yes (Hospitalization, Other)
  Sender: FDA-Public Use
  Company Number: US-UNITED THERAPEUTICS-UNT-2019-009507

PATIENT
  Age: 61 Year
  Sex: Female
  Weight: 125.62 kg

DRUGS (6)
  1. ORENITRAM [Suspect]
     Active Substance: TREPROSTINIL
     Indication: PULMONARY ARTERIAL HYPERTENSION
     Dosage: 7.5 MG, TID
     Route: 048
     Dates: start: 20190522
  2. ORENITRAM [Suspect]
     Active Substance: TREPROSTINIL
     Indication: PULMONARY ARTERIAL HYPERTENSION
     Dosage: 7.5 MG, TID
     Route: 048
     Dates: start: 20190522
  3. CIALIS [Suspect]
     Active Substance: TADALAFIL
     Indication: PRODUCT USED FOR UNKNOWN INDICATION
     Dosage: UNK
     Route: 065
     Dates: end: 20190525
  4. TORSEMIDE. [Suspect]
     Active Substance: TORSEMIDE
     Indication: PRODUCT USED FOR UNKNOWN INDICATION
     Dosage: UNK
     Route: 065
  5. ORENITRAM [Suspect]
     Active Substance: TREPROSTINIL
     Dosage: UNK
     Route: 048
  6. ORENITRAM [Suspect]
     Active Substance: TREPROSTINIL
     Dosage: UNK
     Route: 048

REACTIONS (27)
  - Hyperhidrosis [Unknown]
  - Abdominal pain [Unknown]
  - Musculoskeletal pain [Unknown]
  - Renal failure [Unknown]
  - Sleep apnoea syndrome [Unknown]
  - Dyspnoea [Unknown]
  - Abdominal distension [Unknown]
  - Fluid retention [Unknown]
  - Feeling abnormal [Unknown]
  - Pain in jaw [Unknown]
  - Urticaria [Unknown]
  - Blindness unilateral [Unknown]
  - Presyncope [Unknown]
  - Vision blurred [Unknown]
  - Visual impairment [Unknown]
  - Oedema peripheral [Unknown]
  - Headache [Unknown]
  - Abdominal discomfort [Unknown]
  - Oxygen saturation decreased [Unknown]
  - Tunnel vision [Unknown]
  - Feeling hot [Unknown]
  - Ascites [Unknown]
  - Abdominal pain upper [Unknown]
  - Heart rate increased [Unknown]
  - Blood pressure decreased [Unknown]
  - Palpitations [Unknown]
  - Anxiety [Unknown]

NARRATIVE: CASE EVENT DATE: 2019
